FAERS Safety Report 4304907-5 (Version None)
Quarter: 2004Q1

REPORT INFORMATION
  Report Type: 
  Country: None (occurrence: None)
  Receive Date: 20040226
  Receipt Date: 20040108
  Transmission Date: 20041129
  Serious: No
  Sender: FDA-Public Use
  Company Number: US-GLAXOSMITHKLINE-A0492408A

PATIENT
  Age: 41 Year

DRUGS (1)
  1. WELLBUTRIN [Suspect]
     Dosage: 300MG PER DAY
     Route: 048

REACTIONS (3)
  - EYE IRRITATION [None]
  - KERATOCONJUNCTIVITIS SICCA [None]
  - VISION BLURRED [None]
